FAERS Safety Report 4497692-8 (Version None)
Quarter: 2004Q4

REPORT INFORMATION
  Report Type: 
  Country: None (occurrence: None)
  Receive Date: 20041108
  Receipt Date: 20041022
  Transmission Date: 20050328
  Serious: Yes (Death)
  Sender: FDA-Public Use
  Company Number: NL-JNJFOC-20040907839

PATIENT
  Sex: Female
  Weight: 47.8 kg

DRUGS (9)
  1. RISPERDAL [Suspect]
  2. RISPERDAL [Suspect]
  3. RISPERDAL [Suspect]
  4. CITALOPRAM [Concomitant]
  5. CITALOPRAM [Concomitant]
     Dosage: TAPERED
  6. NAPROXEN [Concomitant]
  7. NAPROXEN [Concomitant]
  8. ACETAMINOPHEN [Concomitant]
     Dosage: 500 MG -7 TABLETS IN 3 DAYS
  9. LACTULOSE [Concomitant]
     Indication: CONSTIPATION
     Dosage: SINCE THE AGE OF 4

REACTIONS (11)
  - ARRHYTHMIA [None]
  - CARDIOMYOPATHY [None]
  - CENTRAL NERVOUS SYSTEM INFECTION [None]
  - CEREBRAL ISCHAEMIA [None]
  - EPILEPSY [None]
  - FATIGUE [None]
  - MENSTRUAL DISORDER [None]
  - MYOCARDIAL CALCIFICATION [None]
  - PANCREATIC DISORDER [None]
  - SCAR [None]
  - WEIGHT INCREASED [None]
